FAERS Safety Report 6253151-3 (Version None)
Quarter: 2009Q3

REPORT INFORMATION
  Report Type: 
  Country: None (occurrence: None)
  Receive Date: 20090701
  Receipt Date: 20090625
  Transmission Date: 20100115
  Serious: Yes (Hospitalization)
  Sender: FDA-Public Use
  Company Number: US-BAYER-200921259NA

PATIENT
  Age: 67 Year
  Sex: Male
  Weight: 92 kg

DRUGS (19)
  1. SORAFENIB [Suspect]
     Indication: MALIGNANT MELANOMA
     Dosage: UNIT DOSE: 200 MG
     Route: 048
     Dates: start: 20090424, end: 20090507
  2. MELPHALAN [Suspect]
     Indication: MALIGNANT MELANOMA
     Dates: start: 20090501, end: 20090501
  3. ZOFRAN [Concomitant]
     Route: 042
     Dates: start: 20090501, end: 20090501
  4. ZOFRAN [Concomitant]
     Route: 048
     Dates: start: 20090424
  5. ZOFRAN [Concomitant]
     Route: 048
     Dates: start: 20080607, end: 20080609
  6. VOLTAREN [Concomitant]
     Route: 048
     Dates: start: 20080607
  7. VOLTAREN [Concomitant]
     Route: 048
     Dates: start: 19810101
  8. CONATEDINCE [Concomitant]
     Route: 048
     Dates: start: 20000101
  9. NASAL COM [Concomitant]
     Route: 045
     Dates: start: 20040101
  10. FIBERCON [Concomitant]
     Route: 048
     Dates: start: 19990101
  11. CLARITIN [Concomitant]
     Route: 048
     Dates: start: 20090607
  12. CLARITIN [Concomitant]
     Route: 048
     Dates: start: 20090502
  13. COLACE [Concomitant]
     Route: 048
     Dates: start: 20080607
  14. COLACE [Concomitant]
     Route: 048
     Dates: start: 20090502, end: 20090507
  15. TYLENOL (CAPLET) [Concomitant]
     Route: 048
     Dates: start: 20090502
  16. TYLENOL (CAPLET) [Concomitant]
     Route: 048
     Dates: start: 20080607
  17. HYDROCORTISONE [Concomitant]
     Route: 061
     Dates: start: 20090503
  18. CIPRO [Concomitant]
     Route: 048
     Dates: start: 20080608
  19. TRIAMCINOLONE [Concomitant]
     Route: 061
     Dates: start: 20080607

REACTIONS (3)
  - CELLULITIS [None]
  - INFECTED SKIN ULCER [None]
  - SKIN ULCER [None]
